FAERS Safety Report 20682585 (Version 2)
Quarter: 2022Q2

REPORT INFORMATION
  Report Type: Report from Study
  Country: US (occurrence: US)
  Receive Date: 20220407
  Receipt Date: 20220413
  Transmission Date: 20220721
  Serious: No
  Sender: FDA-Public Use
  Company Number: US-NOVARTISTESTPH-NVSC2022US078604

PATIENT
  Sex: Male

DRUGS (1)
  1. KESIMPTA [Suspect]
     Active Substance: OFATUMUMAB
     Indication: Multiple sclerosis
     Route: 058
     Dates: start: 20211022

REACTIONS (4)
  - Vertigo [Not Recovered/Not Resolved]
  - Dizziness [Recovering/Resolving]
  - Gait disturbance [Not Recovered/Not Resolved]
  - Product administration interrupted [Unknown]
